FAERS Safety Report 20167160 (Version 1)
Quarter: 2021Q4

REPORT INFORMATION
  Report Type: Report from Study
  Country: SG (occurrence: SG)
  Receive Date: 20211209
  Receipt Date: 20211209
  Transmission Date: 20220303
  Serious: Yes (Other)
  Sender: FDA-Public Use
  Company Number: SG-TEVA-2021-SG-1984815

PATIENT
  Age: 84 Year
  Sex: Female

DRUGS (2)
  1. PREDNISOLONE [Suspect]
     Active Substance: PREDNISOLONE
     Indication: Pemphigus
     Dosage: 30 MILLIGRAM DAILY; PREDNISOLONE 30 MG/DAY FOR 29 MONTHS WITH A TAPERING DOSE
     Route: 065
  2. DAPSONE [Suspect]
     Active Substance: DAPSONE
     Indication: Pemphigus
     Dosage: ADMINISTERED FOR 1 MONTH.
     Route: 065

REACTIONS (1)
  - Hepatitis B reactivation [Unknown]
